FAERS Safety Report 25365677 (Version 2)
Quarter: 2025Q3

REPORT INFORMATION
  Report Type: Spontaneous
  Country: BR (occurrence: BR)
  Receive Date: 20250527
  Receipt Date: 20250803
  Transmission Date: 20251020
  Serious: Yes (Other)
  Sender: ALEXION PHARMACEUTICALS
  Company Number: BR-ASTRAZENECA-202505SAM021244BR

PATIENT
  Age: 64 Year
  Sex: Female
  Weight: 54 kg

DRUGS (1)
  1. LYNPARZA [Suspect]
     Active Substance: OLAPARIB
     Indication: Ovarian cancer metastatic
     Route: 065

REACTIONS (2)
  - Ovarian cancer recurrent [Unknown]
  - Metastases to liver [Unknown]

NARRATIVE: CASE EVENT DATE: 20241201
